FAERS Safety Report 23544193 (Version 2)
Quarter: 2024Q1

REPORT INFORMATION
  Report Type: Spontaneous
  Country: US (occurrence: US)
  Receive Date: 20240220
  Receipt Date: 20240319
  Transmission Date: 20240409
  Serious: No
  Sender: FDA-Public Use
  Company Number: US-SA-SAC20240216000630

PATIENT
  Age: 97 Year
  Sex: Female

DRUGS (1)
  1. DUPIXENT [Suspect]
     Active Substance: DUPILUMAB
     Indication: Nasal polyps
     Dosage: 300 MG, QOW
     Route: 058

REACTIONS (7)
  - Injection site pain [Recovering/Resolving]
  - Taste disorder [Unknown]
  - Dyspnoea [Unknown]
  - Parosmia [Unknown]
  - Nasal congestion [Unknown]
  - Ear discomfort [Unknown]
  - Visual impairment [Unknown]
